FAERS Safety Report 18723697 (Version 1)
Quarter: 2021Q1

REPORT INFORMATION
  Report Type: Report from Study
  Country: PK (occurrence: PK)
  Receive Date: 20210111
  Receipt Date: 20210111
  Transmission Date: 20210419
  Serious: Yes (Other)
  Sender: FDA-Public Use
  Company Number: NVSC2021PK001817

PATIENT
  Age: 56 Year
  Sex: Female
  Weight: 85 kg

DRUGS (1)
  1. KISQALI [Suspect]
     Active Substance: RIBOCICLIB
     Indication: BREAST CANCER METASTATIC
     Dosage: 600 MG, TID
     Route: 048
     Dates: start: 20190805, end: 20200820

REACTIONS (6)
  - Renal cyst [Not Recovered/Not Resolved]
  - Malignant neoplasm progression [Not Recovered/Not Resolved]
  - Lymphadenopathy [Not Recovered/Not Resolved]
  - Metastases to pleura [Not Recovered/Not Resolved]
  - Breast cancer metastatic [Not Recovered/Not Resolved]
  - Metastases to lymph nodes [Not Recovered/Not Resolved]

NARRATIVE: CASE EVENT DATE: 20201105
